FAERS Safety Report 12281801 (Version 1)
Quarter: 2016Q2

REPORT INFORMATION
  Report Type: Spontaneous
  Country: US (occurrence: None)
  Receive Date: 20160418
  Receipt Date: 20160418
  Transmission Date: 20160815
  Serious: Yes (Hospitalization)
  Sender: FDA-Public Use
  Company Number: None

PATIENT
  Age: 51 Year
  Sex: Male
  Weight: 72.58 kg

DRUGS (3)
  1. SYNTHROID [Concomitant]
     Active Substance: LEVOTHYROXINE SODIUM
  2. LAMOTRIGINE. [Concomitant]
     Active Substance: LAMOTRIGINE
  3. BUPROPION 150MG XL, 150 MG [Suspect]
     Active Substance: BUPROPION HYDROCHLORIDE
     Indication: DEPRESSION
     Dosage: 3 TABLET (S) IN THE MORNING TAKEN BY MOUTH
     Route: 048
     Dates: start: 20090515, end: 20150605

REACTIONS (19)
  - Hostility [None]
  - Energy increased [None]
  - Thinking abnormal [None]
  - Irritability [None]
  - Insomnia [None]
  - Product substitution issue [None]
  - Psychomotor hyperactivity [None]
  - Migraine [None]
  - Logorrhoea [None]
  - Distractibility [None]
  - Tension [None]
  - Euphoric mood [None]
  - Impulsive behaviour [None]
  - Condition aggravated [None]
  - Abnormal behaviour [None]
  - Grandiosity [None]
  - Sensation of foreign body [None]
  - Agitation [None]
  - Cognitive disorder [None]

NARRATIVE: CASE EVENT DATE: 20150105
